FAERS Safety Report 9376319 (Version 1)
Quarter: 2013Q3

REPORT INFORMATION
  Report Type: Spontaneous
  Country: DE (occurrence: DE)
  Receive Date: 20130701
  Receipt Date: 20130701
  Transmission Date: 20140515
  Serious: Yes (Congenital Anomaly)
  Sender: FDA-Public Use
  Company Number: GXKR2013DE002224

PATIENT
  Sex: 0

DRUGS (2)
  1. MIRTAZAPINE [Suspect]
     Dosage: MATERNAL DOSE: 7.5 [MG/D ]/ IN TOTAL ONLY 6 TBL; DOSE 3.5 TO 7.5 MG/D
     Route: 064
  2. TAVOR (LORAZEPAM) [Concomitant]
     Dosage: MATERNAL DOSE: VERY LOW DOSE (ONCE)
     Route: 064

REACTIONS (1)
  - Pyloric stenosis [Recovered/Resolved with Sequelae]
